FAERS Safety Report 9600141 (Version 2)
Quarter: 2013Q4

REPORT INFORMATION
  Report Type: Spontaneous
  Country: US (occurrence: US)
  Receive Date: 20131004
  Receipt Date: 20131118
  Transmission Date: 20140711
  Serious: Yes (Other)
  Sender: FDA-Public Use
  Company Number: US-AMGEN-USASP2013032730

PATIENT
  Age: 65 Year
  Sex: Female

DRUGS (1)
  1. ENBREL [Suspect]
     Indication: PSORIASIS
     Dosage: 50 MG, QWK
     Route: 065
     Dates: start: 20120101

REACTIONS (4)
  - Staphylococcal infection [Recovered/Resolved]
  - Foot deformity [Recovered/Resolved]
  - Dry skin [Not Recovered/Not Resolved]
  - Psoriasis [Recovered/Resolved]
